FAERS Safety Report 21970600 (Version 1)
Quarter: 2023Q1

REPORT INFORMATION
  Report Type: Spontaneous
  Country: US (occurrence: US)
  Receive Date: 20230209
  Receipt Date: 20230209
  Transmission Date: 20230417
  Serious: Yes (Congenital Anomaly)
  Sender: FDA-Public Use
  Company Number: US-002147023-NVSC2023US025762

PATIENT
  Weight: 2.9 kg

DRUGS (3)
  1. METHYLPREDNISOLONE [Suspect]
     Active Substance: METHYLPREDNISOLONE
     Indication: Foetal exposure during pregnancy
     Dosage: MATERNAL EXPOSURE DURING PREGNANCY: UNK
     Route: 064
  2. MESALAMINE [Suspect]
     Active Substance: MESALAMINE
     Indication: Foetal exposure during pregnancy
     Dosage: MATERNAL EXPOSURE DURING PREGNANCY: UNK
     Route: 064
  3. INFLIXIMAB [Suspect]
     Active Substance: INFLIXIMAB
     Indication: Foetal exposure during pregnancy
     Dosage: MATERNAL EXPOSURE DURING PREGNANCY: UNK
     Route: 064

REACTIONS (5)
  - Cleft palate [Unknown]
  - Micrognathia [Unknown]
  - Ankyloglossia congenital [Unknown]
  - Laryngomalacia [Unknown]
  - Foetal exposure during pregnancy [Unknown]
